FAERS Safety Report 12069591 (Version 2)
Quarter: 2016Q1

REPORT INFORMATION
  Report Type: Report from Study
  Country: US (occurrence: US)
  Receive Date: 20160211
  Receipt Date: 20160314
  Transmission Date: 20160526
  Serious: Yes (Hospitalization)
  Sender: FDA-Public Use
  Company Number: US-BIOGEN-2016BI00186352

PATIENT
  Sex: Female

DRUGS (1)
  1. AVONEX [Suspect]
     Active Substance: INTERFERON BETA-1A
     Indication: MULTIPLE SCLEROSIS
     Route: 030
     Dates: start: 20010101, end: 20010301

REACTIONS (5)
  - Diarrhoea [Recovered/Resolved]
  - Back pain [Recovered/Resolved]
  - Skin ulcer [Not Recovered/Not Resolved]
  - Adverse reaction [Recovered/Resolved]
  - Mobility decreased [Not Recovered/Not Resolved]
